FAERS Safety Report 12078239 (Version 4)
Quarter: 2016Q4

REPORT INFORMATION
  Report Type: Report from Study
  Country: CA (occurrence: CA)
  Receive Date: 20160215
  Receipt Date: 20161103
  Transmission Date: 20170206
  Serious: Yes (Death, Other)
  Sender: FDA-Public Use
  Company Number: CA-ROCHE-1708807

PATIENT
  Age: 49 Year
  Sex: Female

DRUGS (15)
  1. ROSUVASTATIN. [Concomitant]
     Active Substance: ROSUVASTATIN
  2. VENTOLIN [Concomitant]
     Active Substance: ALBUTEROL SULFATE
  3. PLAQUENIL [Concomitant]
     Active Substance: HYDROXYCHLOROQUINE SULFATE
  4. ELAVIL [Concomitant]
     Active Substance: AMITRIPTYLINE HYDROCHLORIDE
  5. ZOPICLONE [Concomitant]
     Active Substance: ZOPICLONE
  6. ACTEMRA [Suspect]
     Active Substance: TOCILIZUMAB
     Route: 058
     Dates: start: 20160401
  7. DEXILANT [Concomitant]
     Active Substance: DEXLANSOPRAZOLE
  8. ATACAND [Concomitant]
     Active Substance: CANDESARTAN CILEXETIL
  9. NAPROSYN [Concomitant]
     Active Substance: NAPROXEN
  10. LYRICA [Concomitant]
     Active Substance: PREGABALIN
  11. AMLODIPINE [Concomitant]
     Active Substance: AMLODIPINE BESYLATE
  12. SYNTHROID [Concomitant]
     Active Substance: LEVOTHYROXINE SODIUM
  13. OXYCONTIN [Concomitant]
     Active Substance: OXYCODONE HYDROCHLORIDE
  14. ADVAIR HFA [Concomitant]
     Active Substance: FLUTICASONE PROPIONATE\SALMETEROL XINAFOATE
  15. ACTEMRA [Suspect]
     Active Substance: TOCILIZUMAB
     Indication: RHEUMATOID ARTHRITIS
     Route: 058
     Dates: start: 20151215, end: 2016

REACTIONS (6)
  - Death [Fatal]
  - Pancreatic carcinoma stage IV [Not Recovered/Not Resolved]
  - Abdominal pain lower [Not Recovered/Not Resolved]
  - Diarrhoea [Not Recovered/Not Resolved]
  - Pancreatitis [Not Recovered/Not Resolved]
  - Muscle spasms [Recovered/Resolved]

NARRATIVE: CASE EVENT DATE: 20160205
